FAERS Safety Report 13989014 (Version 1)
Quarter: 2017Q3

REPORT INFORMATION
  Report Type: Spontaneous
  Country: US (occurrence: None)
  Receive Date: 20170919
  Receipt Date: 20170919
  Transmission Date: 20171128
  Serious: Yes (Hospitalization)
  Sender: FDA-Public Use
  Company Number: None

PATIENT
  Sex: Female

DRUGS (7)
  1. ATORVASTATIN [Concomitant]
     Active Substance: ATORVASTATIN
  2. METFORMIN [Concomitant]
     Active Substance: METFORMIN HYDROCHLORIDE
  3. LEFLUNOMIDE. [Concomitant]
     Active Substance: LEFLUNOMIDE
  4. LORATADINE. [Concomitant]
     Active Substance: LORATADINE
  5. LOSARTAN. [Concomitant]
     Active Substance: LOSARTAN
  6. ILARIS [Suspect]
     Active Substance: CANAKINUMAB
     Indication: JUVENILE IDIOPATHIC ARTHRITIS
     Dosage: 250MG EVERY MONTH UNDER THE SKIN
     Dates: start: 20170204
  7. HYDROCO [Concomitant]

REACTIONS (1)
  - Upper limb fracture [None]
